FAERS Safety Report 6868380-5 (Version None)
Quarter: 2010Q3

REPORT INFORMATION
  Report Type: 
  Country: None (occurrence: None)
  Receive Date: 20100722
  Receipt Date: 20080702
  Transmission Date: 20110219
  Serious: No
  Sender: FDA-Public Use
  Company Number: US-PFIZER INC-2008042442

PATIENT
  Sex: Male
  Weight: 79.38 kg

DRUGS (9)
  1. CHANTIX [Suspect]
     Indication: SMOKING CESSATION THERAPY
     Route: 048
     Dates: start: 20071101, end: 20080517
  2. VITAMIN C [Concomitant]
     Route: 048
  3. COREG [Concomitant]
     Route: 048
  4. LANOXIN [Concomitant]
     Route: 048
  5. INSPRA [Concomitant]
     Route: 048
  6. ACCUPRIL [Concomitant]
     Route: 048
  7. LIPITOR [Concomitant]
     Indication: BLOOD CHOLESTEROL INCREASED
     Route: 048
  8. ACETYLSALICYLIC ACID [Concomitant]
     Route: 048
  9. MULTI-VITAMINS [Concomitant]
     Route: 048

REACTIONS (4)
  - CHEST DISCOMFORT [None]
  - FRUSTRATION [None]
  - INCORRECT DOSE ADMINISTERED [None]
  - STRESS [None]
